FAERS Safety Report 25796215 (Version 1)
Quarter: 2025Q3

REPORT INFORMATION
  Report Type: Other
  Country: EU (occurrence: EU)
  Receive Date: 20250912
  Receipt Date: 20250912
  Transmission Date: 20251021
  Serious: Yes (Hospitalization, Other)
  Sender: EMD SERONO INC
  Company Number: None

PATIENT
  Age: 31 Year
  Sex: Female

DRUGS (51)
  1. LEVOTHYROXINE SODIUM [Suspect]
     Active Substance: LEVOTHYROXINE SODIUM
     Indication: Quadriparesis
  2. LEVOTHYROXINE SODIUM [Suspect]
     Active Substance: LEVOTHYROXINE SODIUM
     Indication: Pain
  3. LEVOTHYROXINE SODIUM [Suspect]
     Active Substance: LEVOTHYROXINE SODIUM
  4. LEVOTHYROXINE SODIUM [Suspect]
     Active Substance: LEVOTHYROXINE SODIUM
  5. LEVOTHYROXINE SODIUM [Suspect]
     Active Substance: LEVOTHYROXINE SODIUM
  6. LEVOTHYROXINE SODIUM [Suspect]
     Active Substance: LEVOTHYROXINE SODIUM
  7. LEVOTHYROXINE SODIUM [Suspect]
     Active Substance: LEVOTHYROXINE SODIUM
  8. SERTRALINE [Suspect]
     Active Substance: SERTRALINE HYDROCHLORIDE
     Indication: Headache
     Dates: start: 200805
  9. RANITIDINE [Suspect]
     Active Substance: RANITIDINE
     Indication: Product used for unknown indication
     Dosage: DOSE: 2X150 MG
     Dates: start: 200709
  10. PREGABALIN [Suspect]
     Active Substance: PREGABALIN
     Indication: Pain
     Dates: start: 201003
  11. PIROXICAM [Suspect]
     Active Substance: PIROXICAM
     Indication: Pain
  12. PANTOPRAZOLE [Suspect]
     Active Substance: PANTOPRAZOLE
     Indication: Product used for unknown indication
  13. GABAPENTIN [Suspect]
     Active Substance: GABAPENTIN
     Indication: Mental disorder
     Dates: start: 200904
  14. GABAPENTIN [Suspect]
     Active Substance: GABAPENTIN
     Indication: Pain
     Dates: start: 200904
  15. DIAZEPAM [Suspect]
     Active Substance: DIAZEPAM
     Indication: Pain
     Dates: start: 200709
  16. DIAZEPAM [Suspect]
     Active Substance: DIAZEPAM
     Dosage: DOSE: 2 MG, 2 MG, 5 MG QD
     Dates: start: 201003
  17. ALPRAZOLAM [Suspect]
     Active Substance: ALPRAZOLAM
     Indication: Pain
     Dosage: 0.5 MG THRICE A DAY
     Dates: start: 200805
  18. ALPRAZOLAM [Suspect]
     Active Substance: ALPRAZOLAM
     Indication: Persistent depressive disorder
  19. BACLOFEN [Suspect]
     Active Substance: BACLOFEN
     Indication: Pain
     Dosage: DOSE: 3X25 MG
     Dates: start: 200805
  20. BACLOFEN [Suspect]
     Active Substance: BACLOFEN
     Dates: start: 200709
  21. BACLOFEN [Suspect]
     Active Substance: BACLOFEN
     Dosage: 25 MG, TID
     Dates: start: 200904
  22. BACLOFEN [Suspect]
     Active Substance: BACLOFEN
     Dosage: 25 MG, TID
     Dates: start: 201003
  23. BUPRENORPHINE [Suspect]
     Active Substance: BUPRENORPHINE
     Indication: Bradyphrenia
     Dates: start: 200904
  24. BUPRENORPHINE [Suspect]
     Active Substance: BUPRENORPHINE
     Indication: Pain
  25. ESOMEPRAZOLE [Suspect]
     Active Substance: ESOMEPRAZOLE
     Indication: Asthenia
     Dates: start: 201003
  26. FENTANYL [Suspect]
     Active Substance: FENTANYL
     Indication: Pain
     Dates: start: 201003
  27. FEXOFENADINE HYDROCHLORIDE [Suspect]
     Active Substance: FEXOFENADINE HYDROCHLORIDE
     Indication: Headache
  28. FEXOFENADINE HYDROCHLORIDE [Suspect]
     Active Substance: FEXOFENADINE HYDROCHLORIDE
     Indication: Pain
  29. GINKGO [Suspect]
     Active Substance: GINKGO
     Indication: Rash
  30. GINKGO [Suspect]
     Active Substance: GINKGO
     Indication: Pain
  31. GINKGO [Suspect]
     Active Substance: GINKGO
     Indication: Pain
  32. IBUPROFEN [Suspect]
     Active Substance: IBUPROFEN
     Indication: Pain
  33. NEUROBION FORTE [Suspect]
     Active Substance: CYANOCOBALAMIN\PYRIDOXINE HYDROCHLORIDE\THIAMINE DISULFIDE
     Indication: Asthenia
  34. NEUROBION FORTE [Suspect]
     Active Substance: CYANOCOBALAMIN\PYRIDOXINE HYDROCHLORIDE\THIAMINE DISULFIDE
     Indication: Pain
  35. OXYCODONE [Suspect]
     Active Substance: OXYCODONE
     Indication: Pain
     Dosage: MAR10 10MG PP
     Dates: start: 200904
  36. OXYCODONE [Suspect]
     Active Substance: OXYCODONE
     Dosage: MAR10 10MG PP
     Dates: start: 201003
  37. OXYCODONE [Suspect]
     Active Substance: OXYCODONE
     Dosage: 10 MG, TID
     Dates: start: 200904
  38. OXYCODONE [Suspect]
     Active Substance: OXYCODONE
     Dosage: 10 MG, TID
     Dates: start: 201003
  39. OXYCODONE [Suspect]
     Active Substance: OXYCODONE
     Dosage: 10 MG, TID
     Dates: start: 200904
  40. ACETAMINOPHEN\TRAMADOL HYDROCHLORIDE [Suspect]
     Active Substance: ACETAMINOPHEN\TRAMADOL HYDROCHLORIDE
     Indication: Pain
     Dosage: DOSE: 3X 2 (375/325MG)
     Dates: start: 200805
  41. ACETAMINOPHEN\TRAMADOL HYDROCHLORIDE [Suspect]
     Active Substance: ACETAMINOPHEN\TRAMADOL HYDROCHLORIDE
     Dosage: 37.5 MG/325MG 2 TABLETS 3 TIMES PER DAY
     Dates: start: 200709
  42. ACETAMINOPHEN\TRAMADOL HYDROCHLORIDE [Suspect]
     Active Substance: ACETAMINOPHEN\TRAMADOL HYDROCHLORIDE
     Dosage: 2 DF TID
     Dates: start: 200709
  43. ACETAMINOPHEN\TRAMADOL HYDROCHLORIDE [Suspect]
     Active Substance: ACETAMINOPHEN\TRAMADOL HYDROCHLORIDE
     Dosage: 37.5 MG/325MG 2 TABLETS 3 TIMES PER DAY
     Dates: start: 200904
  44. ACETAMINOPHEN\TRAMADOL HYDROCHLORIDE [Suspect]
     Active Substance: ACETAMINOPHEN\TRAMADOL HYDROCHLORIDE
  45. ACETAMINOPHEN\TRAMADOL HYDROCHLORIDE [Suspect]
     Active Substance: ACETAMINOPHEN\TRAMADOL HYDROCHLORIDE
     Dosage: 37.5 MG/325MG 2 TABLETS 3 TIMES PER DAY
     Dates: start: 200904
  46. ACETAMINOPHEN\TRAMADOL HYDROCHLORIDE [Suspect]
     Active Substance: ACETAMINOPHEN\TRAMADOL HYDROCHLORIDE
     Dosage: 37.5 MG/325MG 2 TABLETS 3 TIMES PER DAY
     Dates: start: 200709
  47. ACETAMINOPHEN\TRAMADOL HYDROCHLORIDE [Suspect]
     Active Substance: ACETAMINOPHEN\TRAMADOL HYDROCHLORIDE
     Dosage: 2 DF QD 3X2(375/325 MG)
     Dates: start: 200805
  48. SERTRALINE HYDROCHLORIDE [Suspect]
     Active Substance: SERTRALINE HYDROCHLORIDE
     Indication: Pain
     Dosage: DOSE: 50 MG 1X1
     Dates: start: 200904
  49. SERTRALINE HYDROCHLORIDE [Suspect]
     Active Substance: SERTRALINE HYDROCHLORIDE
     Dates: start: 200805
  50. CARBAMAZEPINE [Interacting]
     Active Substance: CARBAMAZEPINE
     Indication: Pain
     Dosage: DOSE: 3X200 MG
     Dates: start: 200709
  51. TRAMADOL [Concomitant]
     Active Substance: TRAMADOL
     Indication: Pain
     Dosage: 37.5 MG, TID
     Dates: start: 200805

REACTIONS (42)
  - Schizophrenia [Unknown]
  - Depression [Unknown]
  - Cognitive disorder [Unknown]
  - Sensory disturbance [Unknown]
  - Confusional state [Unknown]
  - Conversion disorder [Unknown]
  - Neurosis [Unknown]
  - Disturbance in attention [Unknown]
  - Quadriparesis [Unknown]
  - Asthenia [Unknown]
  - Diplopia [Unknown]
  - Syncope [Unknown]
  - Loss of consciousness [Unknown]
  - Feeling abnormal [Unknown]
  - Pain [Unknown]
  - Psychomotor skills impaired [Unknown]
  - Musculoskeletal stiffness [Unknown]
  - Oedema [Unknown]
  - Anxiety [Unknown]
  - Sedation [Unknown]
  - Dizziness [Unknown]
  - Constipation [Unknown]
  - Fatigue [Unknown]
  - Persistent depressive disorder [Unknown]
  - Euphoric mood [Unknown]
  - Gastrointestinal motility disorder [Unknown]
  - Neurosis [Unknown]
  - Disturbance in attention [Unknown]
  - Erythema [Unknown]
  - Agitation [Unknown]
  - Rash [Unknown]
  - Vomiting [Unknown]
  - Headache [Unknown]
  - Pruritus [Unknown]
  - Nausea [Unknown]
  - Ill-defined disorder [Unknown]
  - Asthenia [Unknown]
  - Ataxia [Unknown]
  - Asthenia [Unknown]
  - Pain [Unknown]
  - Pain [Unknown]
  - Ill-defined disorder [Unknown]
